FAERS Safety Report 6255511-3 (Version None)
Quarter: 2009Q2

REPORT INFORMATION
  Report Type: 
  Country: None (occurrence: None)
  Receive Date: 20090630
  Receipt Date: 20090622
  Transmission Date: 20091009
  Serious: Yes (Life-Threatening, Hospitalization, Other)
  Sender: FDA-Public Use
  Company Number: 2009JP003871

PATIENT
  Age: 56 Year
  Sex: Female

DRUGS (37)
  1. TACROLIMUS [Suspect]
     Indication: RENAL TRANSPLANT
     Dosage: 6 MG, UID/QD, ORAL; 5.5 MG, UID/QD, ORAL; ORAL
     Route: 048
     Dates: start: 20040609, end: 20040609
  2. TACROLIMUS [Suspect]
     Indication: RENAL TRANSPLANT
     Dosage: 6 MG, UID/QD, ORAL; 5.5 MG, UID/QD, ORAL; ORAL
     Route: 048
     Dates: start: 20040809
  3. MYCOPHENOLATE MOFETIL [Suspect]
     Indication: RENAL TRANSPLANT
     Dosage: SEE IMAGE
     Route: 048
     Dates: start: 20040609, end: 20040617
  4. MYCOPHENOLATE MOFETIL [Suspect]
     Indication: RENAL TRANSPLANT
     Dosage: SEE IMAGE
     Route: 048
     Dates: start: 20040618, end: 20040809
  5. MYCOPHENOLATE MOFETIL [Suspect]
     Indication: RENAL TRANSPLANT
     Dosage: SEE IMAGE
     Route: 048
     Dates: start: 20040810, end: 20040819
  6. MYCOPHENOLATE MOFETIL [Suspect]
     Indication: RENAL TRANSPLANT
     Dosage: SEE IMAGE
     Route: 048
     Dates: start: 20040820, end: 20040905
  7. MYCOPHENOLATE MOFETIL [Suspect]
     Indication: RENAL TRANSPLANT
     Dosage: SEE IMAGE
     Route: 048
     Dates: start: 20040906, end: 20040906
  8. MYCOPHENOLATE MOFETIL [Suspect]
     Indication: RENAL TRANSPLANT
     Dosage: SEE IMAGE
     Route: 048
     Dates: start: 20040907, end: 20041025
  9. MYCOPHENOLATE MOFETIL [Suspect]
     Indication: RENAL TRANSPLANT
     Dosage: SEE IMAGE
     Route: 048
     Dates: start: 20041101, end: 20041215
  10. MYCOPHENOLATE MOFETIL [Suspect]
     Indication: RENAL TRANSPLANT
     Dosage: SEE IMAGE
     Route: 048
     Dates: start: 20041216, end: 20041223
  11. MYCOPHENOLATE MOFETIL [Suspect]
     Indication: RENAL TRANSPLANT
     Dosage: SEE IMAGE
     Route: 048
     Dates: start: 20041224, end: 20041225
  12. MYCOPHENOLATE MOFETIL [Suspect]
     Indication: RENAL TRANSPLANT
     Dosage: SEE IMAGE
     Route: 048
     Dates: start: 20041230, end: 20050102
  13. MYCOPHENOLATE MOFETIL [Suspect]
     Indication: RENAL TRANSPLANT
     Dosage: SEE IMAGE
     Route: 048
     Dates: start: 20050103, end: 20050211
  14. MYCOPHENOLATE MOFETIL [Suspect]
     Indication: RENAL TRANSPLANT
     Dosage: SEE IMAGE
     Route: 048
     Dates: start: 20051102
  15. METHYLPREDNISOLONE [Suspect]
     Indication: RENAL TRANSPLANT
     Dosage: 1000 MG, UID/QD, IV NOS; IV NOS
     Route: 042
     Dates: end: 20051120
  16. METHYLPREDNISOLONE [Suspect]
     Indication: RENAL TRANSPLANT
     Dosage: 1000 MG, UID/QD, IV NOS; IV NOS
     Route: 042
     Dates: start: 20040609
  17. SIROLIMUS(SIROLIMUS) PER ORAL NOS [Suspect]
     Indication: RENAL TRANSPLANT
     Dosage: 6 MG, UID/QD, ORAL; ORAL
     Route: 048
     Dates: end: 20041230
  18. SIROLIMUS(SIROLIMUS) PER ORAL NOS [Suspect]
     Indication: RENAL TRANSPLANT
     Dosage: 6 MG, UID/QD, ORAL; ORAL
     Route: 048
     Dates: start: 20040609
  19. DACLIZUMAB(DACLIZUMAB) INJECTION [Suspect]
     Indication: RENAL TRANSPLANT
     Dosage: 135 MG, UID/QD, IV NOS; 75 MG, IV NOS
     Route: 042
     Dates: start: 20040609, end: 20040609
  20. DACLIZUMAB(DACLIZUMAB) INJECTION [Suspect]
     Indication: RENAL TRANSPLANT
     Dosage: 135 MG, UID/QD, IV NOS; 75 MG, IV NOS
     Route: 042
     Dates: start: 20040622, end: 20040805
  21. CYCLOSPORINE [Suspect]
     Indication: RENAL TRANSPLANT
     Dosage: 50 MG, UID/QD, ORAL; 50 MG, BID, ORAL
     Route: 048
     Dates: start: 20050517, end: 20050517
  22. CYCLOSPORINE [Suspect]
     Indication: RENAL TRANSPLANT
     Dosage: 50 MG, UID/QD, ORAL; 50 MG, BID, ORAL
     Route: 048
     Dates: start: 20050518, end: 20050621
  23. PREDNISONE [Suspect]
     Indication: RENAL TRANSPLANT
     Dosage: 30 MG, UID/QD, ORAL; ORAL
     Route: 048
     Dates: start: 20040612
  24. NORFLOXACIN [Concomitant]
  25. THYROXINE (LEVOTHYROXINE SODIUM) FORMULATION UNKNOWN [Concomitant]
  26. CALCITROL (CALCITRIOL) FORMULATION UNKNOWN [Concomitant]
  27. LASIX [Concomitant]
  28. SLOW K (POTASSIUM CHLORIDE) FORMULATION UNKNOWN [Concomitant]
  29. NEUTRAL INSULIN (INSULIN BOVINE) FORMULATION UNKNOWN [Concomitant]
  30. FERRITIN (FERRITIN) FORMULATION UNKNOWN [Concomitant]
  31. VALGANCICLOVIR (VALGANCICLOVIR) FORMULATION UNKNOWN [Concomitant]
  32. OMEPRAZOLE [Concomitant]
  33. VALACYCLOVIR FORMULATION UNKNOWN [Concomitant]
  34. ATENOLOL (ATENOLOL) FORMULATION UNKNOWN [Concomitant]
  35. LIPITOR FORMULATION UNKNOWN [Concomitant]
  36. AZATHIOPRIN FORMULATION UNKNOWN [Concomitant]
  37. ARANESP (DARBEPOETIN ALFA) FORMULATION UNKNOWN [Concomitant]

REACTIONS (11)
  - ANAEMIA [None]
  - BLEEDING TIME PROLONGED [None]
  - COLON CANCER [None]
  - EPSTEIN-BARR VIRUS ASSOCIATED LYMPHOPROLIFERATIVE DISORDER [None]
  - HEADACHE [None]
  - HYDRONEPHROSIS [None]
  - HYPERTENSION [None]
  - LEUKOPENIA [None]
  - PYREXIA [None]
  - SQUAMOUS CELL CARCINOMA OF SKIN [None]
  - URETERIC OBSTRUCTION [None]
